FAERS Safety Report 6779529-7 (Version None)
Quarter: 2010Q2

REPORT INFORMATION
  Report Type: 
  Country: None (occurrence: None)
  Receive Date: 20100618
  Receipt Date: 20100616
  Transmission Date: 20101027
  Serious: Yes (Other)
  Sender: FDA-Public Use
  Company Number: A0863417A

PATIENT
  Age: 60 Year
  Sex: Female

DRUGS (1)
  1. NICORETTE [Suspect]
     Indication: SMOKING CESSATION THERAPY
     Route: 002

REACTIONS (13)
  - ATRIAL FIBRILLATION [None]
  - CEREBROVASCULAR ACCIDENT [None]
  - COLD SWEAT [None]
  - DYSPNOEA [None]
  - HEADACHE [None]
  - INTENTIONAL DRUG MISUSE [None]
  - MALAISE [None]
  - MOOD ALTERED [None]
  - NAUSEA [None]
  - NICOTINE DEPENDENCE [None]
  - PALPITATIONS [None]
  - PRODUCT QUALITY ISSUE [None]
  - TREMOR [None]
